FAERS Safety Report 8566177 (Version 7)
Quarter: 2015Q2

REPORT INFORMATION
  Report Type: Spontaneous
  Country: US (occurrence: US)
  Receive Date: 20120517
  Receipt Date: 20150507
  Transmission Date: 20150821
  Serious: Yes (Other)
  Sender: FDA-Public Use
  Company Number: US-PFIZER INC-2012117762

PATIENT
  Age: 86 Year
  Sex: Female
  Weight: 86 kg

DRUGS (12)
  1. IMDUR [Concomitant]
     Active Substance: ISOSORBIDE MONONITRATE
  2. TYLENOL [Concomitant]
     Active Substance: ACETAMINOPHEN
  3. JANTOVEN [Concomitant]
     Active Substance: WARFARIN SODIUM
  4. IBUPROFEN. [Concomitant]
     Active Substance: IBUPROFEN
  5. HCTZ [Concomitant]
     Active Substance: HYDROCHLOROTHIAZIDE
  6. T3 [Concomitant]
     Active Substance: LIOTHYRONINE SODIUM
  7. COREG [Concomitant]
     Active Substance: CARVEDILOL
  8. LIPITOR [Concomitant]
     Active Substance: ATORVASTATIN CALCIUM
  9. XANAX [Concomitant]
     Active Substance: ALPRAZOLAM
  10. LYRICA [Suspect]
     Active Substance: PREGABALIN
     Indication: NEUROPATHY PERIPHERAL
     Dosage: 75 MG, 1X/DAY (QHS)
     Route: 048
     Dates: start: 2010
  11. ELAVIL [Concomitant]
     Active Substance: AMITRIPTYLINE HYDROCHLORIDE
  12. PRILOSEC [Concomitant]
     Active Substance: OMEPRAZOLE MAGNESIUM

REACTIONS (8)
  - Pain in extremity [Unknown]
  - Back pain [Unknown]
  - Foot fracture [Unknown]
  - Nervousness [Unknown]
  - Pain [Unknown]
  - Musculoskeletal disorder [Unknown]
  - Hypoacusis [Unknown]
  - Insomnia [Unknown]
